FAERS Safety Report 7353914-7 (Version None)
Quarter: 2011Q1

REPORT INFORMATION
  Report Type: 
  Country: None (occurrence: None)
  Receive Date: 20110315
  Receipt Date: 20110301
  Transmission Date: 20110831
  Serious: Yes (Hospitalization)
  Sender: FDA-Public Use
  Company Number: PHHY2011IN19712

PATIENT
  Age: 73 Year
  Sex: Female

DRUGS (14)
  1. ATIVAN [Concomitant]
     Dosage: 1 GM DAILY
  2. BUTRUS [Concomitant]
     Dosage: UNK
  3. CEFF-BET [Concomitant]
     Dosage: UNK
  4. TRAMAZAC [Concomitant]
     Dosage: UNK
  5. ACLASTA [Suspect]
     Dosage: UNK
     Dates: start: 20100520
  6. BRIO [Concomitant]
     Dosage: UNK
  7. OMEZ [Concomitant]
     Dosage: TWICE DAILY FOR ONE WEEK
  8. ZERODOL [Concomitant]
     Dosage: DAILY FOR 1 WEEK
  9. PAN 40 [Concomitant]
     Dosage: UNK
  10. DEXORANGE [Concomitant]
     Dosage: TWICE D AILY FOR FOR 30 DAYS
  11. ENTEROGERMINA [Concomitant]
     Dosage: DAILY FOR ONE WEEK
  12. LNZ [Concomitant]
  13. S-NUMLO [Concomitant]
     Dosage: UNK
  14. MAGNOVA [Concomitant]
     Dosage: UNK

REACTIONS (18)
  - HAEMOGLOBIN DECREASED [None]
  - HAEMATOCRIT DECREASED [None]
  - WHITE BLOOD CELL COUNT [None]
  - CREATININE RENAL CLEARANCE INCREASED [None]
  - FALL [None]
  - BLOOD CHLORIDE DECREASED [None]
  - RED BLOOD CELL COUNT ABNORMAL [None]
  - NEUTROPHIL COUNT INCREASED [None]
  - RED BLOOD CELL SEDIMENTATION RATE INCREASED [None]
  - PAIN [None]
  - SWELLING [None]
  - BLOOD GLUCOSE INCREASED [None]
  - FEMORAL NECK FRACTURE [None]
  - ABASIA [None]
  - LYMPHOCYTE COUNT DECREASED [None]
  - EOSINOPHIL COUNT DECREASED [None]
  - BLOOD SODIUM DECREASED [None]
  - HIP FRACTURE [None]
